FAERS Safety Report 7804558-1 (Version None)
Quarter: 2011Q4

REPORT INFORMATION
  Report Type: 
  Country: None (occurrence: None)
  Receive Date: 20111010
  Receipt Date: 20110928
  Transmission Date: 20120403
  Serious: Yes (Other)
  Sender: FDA-Public Use
  Company Number: PHHY2011AR73740

PATIENT
  Sex: Female

DRUGS (6)
  1. CORTICOSTEROIDS [Concomitant]
     Indication: ARTHRITIS
  2. ANTIINFLAMMATORY/ANTIRHEUMATIC PRODUCTS [Concomitant]
     Indication: ARTHRITIS
  3. DIOVAN [Suspect]
     Indication: HYPERTENSION
     Dosage: 320 MG, DAILY
     Dates: start: 20100101
  4. PAINKILLERS [Concomitant]
     Indication: ARTHRITIS
  5. AMLODIPINE [Concomitant]
  6. DIURETICS [Concomitant]

REACTIONS (6)
  - ARTHRITIS [None]
  - PAIN [None]
  - HEADACHE [None]
  - BLOOD PRESSURE INCREASED [None]
  - HYPOACUSIS [None]
  - NAUSEA [None]
